FAERS Safety Report 8979317 (Version 3)
Quarter: 2013Q1

REPORT INFORMATION
  Report Type: Spontaneous
  Country: FR (occurrence: FR)
  Receive Date: 20121221
  Receipt Date: 20130314
  Transmission Date: 20140127
  Serious: Yes (Hospitalization)
  Sender: FDA-Public Use
  Company Number: FR-NOVOPROD-366945

PATIENT
  Age: 84 Year
  Sex: Male

DRUGS (14)
  1. NOVORAPID [Suspect]
     Indication: TYPE 2 DIABETES MELLITUS
     Route: 058
  2. LANTUS [Suspect]
     Indication: TYPE 2 DIABETES MELLITUS
     Dosage: 40 IU, QD
     Route: 058
  3. ATORVASTATINE                      /01326101/ [Concomitant]
     Indication: DYSLIPIDAEMIA
     Dosage: 10 MG, QD
     Route: 048
  4. RAMIPRIL [Concomitant]
     Indication: HYPERTENSION
     Dosage: 1.25 MG, QD
     Route: 048
  5. NEBIVOLOL [Concomitant]
     Indication: HYPOTENSION
     Dosage: 2.5 MG, QD
     Route: 048
  6. SPIRIVA [Concomitant]
     Indication: CHRONIC OBSTRUCTIVE PULMONARY DISEASE
     Dosage: ONE DOSE DAILY
     Route: 055
  7. PREVISCAN                          /00261401/ [Concomitant]
     Dosage: 10 MG, QD
     Route: 048
     Dates: end: 20121110
  8. AMIODARONE [Concomitant]
     Indication: ATRIOVENTRICULAR BLOCK COMPLETE
     Dosage: 200 MG, QD
     Route: 048
  9. FUROSEMIDE [Concomitant]
     Indication: HYPERTENSION
     Dosage: 40 MG, QD
     Route: 048
  10. DIFFU K [Concomitant]
     Dosage: 600 MG, TID
     Route: 048
  11. PARACETAMOL [Concomitant]
     Indication: PAIN
     Dosage: AS NEEDED
     Route: 048
     Dates: end: 20121111
  12. SERETIDE [Concomitant]
     Indication: CHRONIC OBSTRUCTIVE PULMONARY DISEASE
     Dosage: TWO PHARMACEUTICAL DOSES DAILY
     Route: 055
  13. VENTOLINE                          /00139501/ [Concomitant]
     Indication: CHRONIC OBSTRUCTIVE PULMONARY DISEASE
     Dosage: THREE PHARMACEUTICAL DOSES
     Route: 055
  14. TARDYFERON [Concomitant]

REACTIONS (4)
  - Loss of consciousness [Recovered/Resolved]
  - Fall [Recovered/Resolved]
  - Femur fracture [Recovering/Resolving]
  - Hypoglycaemia [Recovered/Resolved]
